FAERS Safety Report 8119453-0 (Version None)
Quarter: 2011Q4

REPORT INFORMATION
  Report Type: 
  Country: None (occurrence: None)
  Receive Date: 20111227
  Receipt Date: 20111005
  Transmission Date: 20120403
  Serious: No
  Sender: FDA-Public Use
  Company Number: PHEH2011US05415

PATIENT
  Age: 23 Year
  Sex: Male
  Weight: 81.6 kg

DRUGS (1)
  1. GILENYA [Suspect]
     Indication: MULTIPLE SCLEROSIS
     Dosage: 0.5 MG, QD, ORAL
     Route: 048
     Dates: start: 20110922

REACTIONS (4)
  - PAIN [None]
  - DIZZINESS [None]
  - CHROMATOPSIA [None]
  - NAUSEA [None]
